FAERS Safety Report 6836669-1 (Version None)
Quarter: 2010Q3

REPORT INFORMATION
  Report Type: 
  Country: None (occurrence: None)
  Receive Date: 20100713
  Receipt Date: 20100629
  Transmission Date: 20110219
  Serious: Yes (Other)
  Sender: FDA-Public Use
  Company Number: PHHY2010DE43845

PATIENT
  Sex: Male

DRUGS (3)
  1. ACLASTA/ZOLEDRONATE T29581+A++OS [Suspect]
     Dosage: 5 MG ONCE YEARLY
     Dates: start: 20100316, end: 20100316
  2. VITAMINE D [Concomitant]
     Indication: OSTEOPOROSIS
     Dosage: 400 IE
  3. CALCIUM [Concomitant]
     Indication: OSTEOPOROSIS
     Dosage: 800 MG

REACTIONS (5)
  - HYPERHIDROSIS [None]
  - INSOMNIA [None]
  - MALAISE [None]
  - PAIN IN EXTREMITY [None]
  - TACHYCARDIA [None]
